FAERS Safety Report 14517199 (Version 1)
Quarter: 2018Q1

REPORT INFORMATION
  Report Type: Spontaneous
  Country: US (occurrence: US)
  Receive Date: 20180209
  Receipt Date: 20180209
  Transmission Date: 20180509
  Serious: Yes (Death)
  Sender: FDA-Public Use
  Company Number: None

PATIENT
  Age: 52 Year
  Sex: Male

DRUGS (1)
  1. TESTOST.ENTH 200MG/ML MDV [Suspect]
     Active Substance: TESTOSTERONE ENANTHATE
     Indication: TESTICULAR FAILURE
     Dosage: 400MG (2ML) Q28D IM
     Route: 030
     Dates: start: 201710, end: 201801

REACTIONS (1)
  - Cardiac disorder [None]

NARRATIVE: CASE EVENT DATE: 20171229
